FAERS Safety Report 18409978 (Version 1)
Quarter: 2020Q4

REPORT INFORMATION
  Report Type: Spontaneous
  Country: US (occurrence: US)
  Receive Date: 20201021
  Receipt Date: 20201021
  Transmission Date: 20210114
  Serious: Yes (Other)
  Sender: FDA-Public Use
  Company Number: US-BAYER-2020-221016

PATIENT
  Age: 55 Year
  Sex: Male

DRUGS (3)
  1. JIVI [Suspect]
     Active Substance: DAMOCTOCOG ALFA PEGOL
     Dosage: 4000 U
     Route: 042
  2. JIVI [Suspect]
     Active Substance: DAMOCTOCOG ALFA PEGOL
     Dosage: 2 DF FOR SPONTANEOUS RIGHT ANKLE BLEED
     Route: 042
  3. JIVI [Suspect]
     Active Substance: DAMOCTOCOG ALFA PEGOL
     Dosage: 2 DF FOR DRESSER DRAWE FELL ON HIS TOE
     Route: 042

REACTIONS (2)
  - Haemarthrosis [None]
  - Limb injury [None]

NARRATIVE: CASE EVENT DATE: 20201007
